FAERS Safety Report 7518528-4 (Version None)
Quarter: 2011Q2

REPORT INFORMATION
  Report Type: 
  Country: None (occurrence: None)
  Receive Date: 20110601
  Receipt Date: 20110601
  Transmission Date: 20111010
  Serious: Yes (Life-Threatening, Other)
  Sender: FDA-Public Use
  Company Number: None

PATIENT
  Age: 52 Year
  Sex: Male
  Weight: 58.9676 kg

DRUGS (1)
  1. CIPROFLOXACIN [Suspect]
     Indication: INFECTION
     Dosage: 500MG 2 TIMES PER DAY PO
     Route: 048
     Dates: start: 20110502, end: 20110507

REACTIONS (6)
  - DIZZINESS [None]
  - INSOMNIA [None]
  - FATIGUE [None]
  - DYSPNOEA [None]
  - FEELING ABNORMAL [None]
  - DEPRESSED MOOD [None]
